FAERS Safety Report 11115363 (Version 2)
Quarter: 2015Q2

REPORT INFORMATION
  Report Type: Spontaneous
  Country: US (occurrence: US)
  Receive Date: 20150515
  Receipt Date: 20150623
  Transmission Date: 20150821
  Serious: Yes (Hospitalization, Other)
  Sender: FDA-Public Use
  Company Number: US-AMGEN-USASP2015046945

PATIENT
  Age: 72 Year
  Sex: Female

DRUGS (1)
  1. ENBREL [Suspect]
     Active Substance: ETANERCEPT
     Indication: RHEUMATOID ARTHRITIS
     Dosage: 50 MG, QWK
     Route: 065
     Dates: start: 20040615

REACTIONS (10)
  - Underdose [Recovered/Resolved]
  - Injection site pain [Recovered/Resolved]
  - Neck surgery [Not Recovered/Not Resolved]
  - Back pain [Not Recovered/Not Resolved]
  - Hearing impaired [Not Recovered/Not Resolved]
  - Injury associated with device [Recovered/Resolved]
  - Neck pain [Not Recovered/Not Resolved]
  - Condition aggravated [Recovered/Resolved]
  - Memory impairment [Not Recovered/Not Resolved]
  - Wrong technique in drug usage process [Recovered/Resolved]

NARRATIVE: CASE EVENT DATE: 20150513
